FAERS Safety Report 11661225 (Version 1)
Quarter: 2015Q4

REPORT INFORMATION
  Report Type: Report from Study
  Country: US (occurrence: US)
  Receive Date: 20151026
  Receipt Date: 20151026
  Transmission Date: 20160304
  Serious: Yes (Death, Hospitalization, Other)
  Sender: FDA-Public Use
  Company Number: US-TAKEDA-2015TUS014664

PATIENT
  Sex: Male

DRUGS (2)
  1. FEBUXOSTAT. [Suspect]
     Active Substance: FEBUXOSTAT
     Indication: GOUT
  2. FEBUXOSTAT. [Suspect]
     Active Substance: FEBUXOSTAT
     Indication: HYPERURICAEMIA
     Dosage: 80 MG, TID
     Route: 048
     Dates: end: 20150605

REACTIONS (7)
  - Renal failure [Unknown]
  - Prescribed overdose [Unknown]
  - Hepatic failure [Unknown]
  - Jaundice [Unknown]
  - Staphylococcal infection [Unknown]
  - Death [Fatal]
  - Aphasia [Unknown]
